FAERS Safety Report 25314173 (Version 1)
Quarter: 2025Q2

REPORT INFORMATION
  Report Type: Spontaneous
  Country: US (occurrence: US)
  Receive Date: 20250514
  Receipt Date: 20250514
  Transmission Date: 20250716
  Serious: No
  Sender: BAUSCH AND LOMB
  Company Number: US-BAUSCHBL-2025BNL008201

PATIENT
  Age: 86 Year
  Sex: Male

DRUGS (1)
  1. LATANOPROST [Suspect]
     Active Substance: LATANOPROST
     Indication: Product used for unknown indication
     Route: 047

REACTIONS (4)
  - Eye irritation [Recovered/Resolved]
  - Product closure removal difficult [Unknown]
  - Wrong technique in product usage process [Unknown]
  - Product quality issue [Recovered/Resolved]
